FAERS Safety Report 8596211 (Version 2)
Quarter: 2013Q2

REPORT INFORMATION
  Report Type: Spontaneous
  Country: US (occurrence: US)
  Receive Date: 20120605
  Receipt Date: 20130617
  Transmission Date: 20140414
  Serious: Yes (Hospitalization, Disabling)
  Sender: FDA-Public Use
  Company Number: US-ASTRAZENECA-2012SE35063

PATIENT
  Age: 578 Month
  Sex: Female

DRUGS (12)
  1. NEXIUM [Suspect]
     Route: 048
  2. NEXIUM [Suspect]
     Dosage: 2 A DAY 1 IN MORNING AND 1 IN NIGHT
     Route: 048
     Dates: start: 2000
  3. PRILOSEC [Suspect]
     Route: 048
  4. PREVACID [Concomitant]
  5. ZANTAC [Concomitant]
  6. TAGMENT [Concomitant]
  7. PEPCID OTC [Concomitant]
  8. ROLAIDS [Concomitant]
  9. MILK OF MAGNESIA [Concomitant]
  10. ALKA SELZER (OTC) [Concomitant]
  11. TYLENOL [Concomitant]
  12. IBUROPEN [Concomitant]

REACTIONS (8)
  - Joint dislocation [Unknown]
  - Upper limb fracture [Unknown]
  - Fall [Unknown]
  - Back injury [Unknown]
  - Bone loss [Unknown]
  - Multiple fractures [Unknown]
  - Carpal tunnel syndrome [Unknown]
  - Osteoporosis [Unknown]
